FAERS Safety Report 7092626-4 (Version None)
Quarter: 2010Q4

REPORT INFORMATION
  Report Type: 
  Country: None (occurrence: None)
  Receive Date: 20101110
  Receipt Date: 20101104
  Transmission Date: 20110411
  Serious: Yes (Other)
  Sender: FDA-Public Use
  Company Number: AU-BAYER-201044270GPV

PATIENT
  Age: 50 Year
  Sex: Female

DRUGS (2)
  1. BETAFERON [Suspect]
     Indication: MULTIPLE SCLEROSIS
     Route: 058
     Dates: start: 20050101
  2. BETAFERON [Suspect]
     Dosage: AS USED: 250 ?G/ML
     Route: 058
     Dates: start: 20091030

REACTIONS (2)
  - AMNESIA [None]
  - RASH [None]
